FAERS Safety Report 20611946 (Version 1)
Quarter: 2022Q1

REPORT INFORMATION
  Report Type: Report from Study
  Country: US (occurrence: US)
  Receive Date: 20220318
  Receipt Date: 20220318
  Transmission Date: 20220424
  Serious: Yes (Other)
  Sender: FDA-Public Use
  Company Number: US-SUNOVION-2022SUN000847

PATIENT
  Age: 75 Year
  Sex: Male

DRUGS (1)
  1. KYNMOBI [Suspect]
     Active Substance: APOMORPHINE HYDROCHLORIDE
     Indication: Parkinson^s disease
     Dosage: 15 MG
     Route: 060
     Dates: start: 20220309

REACTIONS (6)
  - Pulmonary oedema [Unknown]
  - Hyperhidrosis [Unknown]
  - Chest pain [Unknown]
  - Vomiting [Unknown]
  - Heart rate decreased [Unknown]
  - Blood pressure immeasurable [Unknown]

NARRATIVE: CASE EVENT DATE: 20220309
